FAERS Safety Report 9557296 (Version 1)
Quarter: 2013Q3

REPORT INFORMATION
  Report Type: Spontaneous
  Country: US (occurrence: None)
  Receive Date: 20130726
  Receipt Date: 20130726
  Transmission Date: 20140515
  Serious: Yes (Hospitalization)
  Sender: FDA-Public Use
  Company Number: UTC-029129

PATIENT
  Age: 67 Year
  Sex: Female
  Weight: 88.6 kg

DRUGS (2)
  1. REMODULIN [Suspect]
     Indication: PRODUCT USED FOR UNKNOWN INDICATION
     Dosage: (0.08 UG/KG. 1 IN 1 MIN)
     Route: 042
     Dates: start: 20120419
  2. REVATIO (SILDENAFIL CITRATE) (UNKNOWN) (SILDENAFIL) [Concomitant]

REACTIONS (1)
  - Pulmonary hypertension [None]
